FAERS Safety Report 5467655-4 (Version None)
Quarter: 2007Q3

REPORT INFORMATION
  Report Type: 
  Country: None (occurrence: None)
  Receive Date: 20070921
  Receipt Date: 20070911
  Transmission Date: 20080115
  Serious: Yes (Other)
  Sender: FDA-Public Use
  Company Number: GXKR2007GB07923

PATIENT
  Sex: Male

DRUGS (7)
  1. LISINOPRIL [Suspect]
     Dosage: 2.5 MG, ORAL
     Route: 048
     Dates: start: 20061027, end: 20070731
  2. ACETYLSALICYLIC ACID SRT [Concomitant]
  3. BISOPROLOL FUMARATE [Concomitant]
  4. CIMETIDINE [Concomitant]
  5. CLOPIDOGREL [Concomitant]
  6. SIMVASTATIN [Concomitant]
  7. SPIRINOLACTONE (SPIRONOLACTONE) [Concomitant]

REACTIONS (3)
  - CONDITION AGGRAVATED [None]
  - PROCTALGIA [None]
  - PSORIASIS [None]
